FAERS Safety Report 13631406 (Version 2)
Quarter: 2017Q4

REPORT INFORMATION
  Report Type: Spontaneous
  Country: JP (occurrence: JP)
  Receive Date: 20170608
  Receipt Date: 20171120
  Transmission Date: 20180320
  Serious: Yes (Hospitalization, Other)
  Sender: FDA-Public Use
  Company Number: JP-PFIZER INC-2017245807

PATIENT
  Age: 79 Year
  Sex: Male

DRUGS (4)
  1. DEPAKENE [Concomitant]
     Active Substance: VALPROIC ACID
     Dosage: UNK
     Dates: end: 201612
  2. ANAFRANIL [Concomitant]
     Active Substance: CLOMIPRAMINE HYDROCHLORIDE
     Dosage: UNK
  3. EFFEXOR [Suspect]
     Active Substance: VENLAFAXINE HYDROCHLORIDE
     Indication: DEPRESSION
     Dosage: 75 MG, DAILY
     Route: 048
     Dates: start: 201612, end: 20170522
  4. LIMAS [Concomitant]
     Active Substance: LITHIUM CARBONATE
     Dosage: UNK
     Dates: end: 201612

REACTIONS (5)
  - Pancytopenia [Not Recovered/Not Resolved]
  - Pneumonia [Recovering/Resolving]
  - Haematemesis [Unknown]
  - Altered state of consciousness [Recovered/Resolved]
  - Epistaxis [Unknown]

NARRATIVE: CASE EVENT DATE: 2017
